FAERS Safety Report 4740008-X (Version None)
Quarter: 2005Q3

REPORT INFORMATION
  Report Type: 
  Country: None (occurrence: None)
  Receive Date: 20050810
  Receipt Date: 20031218
  Transmission Date: 20060218
  Serious: No
  Sender: FDA-Public Use
  Company Number: US-GLAXOSMITHKLINE-A0493127A

PATIENT
  Sex: Male

DRUGS (2)
  1. PAXIL [Suspect]
     Indication: DEPRESSION
     Route: 048
     Dates: start: 19941107
  2. KLONOPIN [Concomitant]
     Indication: STRESS
     Dosage: .5MG PER DAY
     Route: 048

REACTIONS (1)
  - DRUG WITHDRAWAL SYNDROME [None]
